FAERS Safety Report 18119583 (Version 1)
Quarter: 2020Q3

REPORT INFORMATION
  Report Type: Spontaneous
  Country: US (occurrence: US)
  Receive Date: 20200806
  Receipt Date: 20200806
  Transmission Date: 20201103
  Serious: Yes (Other)
  Sender: FDA-Public Use
  Company Number: None

PATIENT
  Age: 46 Year
  Sex: Female
  Weight: 68.04 kg

DRUGS (2)
  1. NEULASTA 6 MG ONPRO KIT [Concomitant]
     Dates: start: 20200725
  2. NEULASTA [Suspect]
     Active Substance: PEGFILGRASTIM

REACTIONS (1)
  - Paralysis [None]

NARRATIVE: CASE EVENT DATE: 20200725
